FAERS Safety Report 14091665 (Version 1)
Quarter: 2017Q4

REPORT INFORMATION
  Report Type: Spontaneous
  Country: GL (occurrence: GL)
  Receive Date: 20171016
  Receipt Date: 20171016
  Transmission Date: 20180321
  Serious: Yes (Hospitalization)
  Sender: FDA-Public Use
  Company Number: GL-ABBVIE-17S-226-2128100-00

PATIENT
  Age: 51 Year
  Sex: Male
  Weight: 77 kg

DRUGS (3)
  1. CLOZAPIN HEXAL [Concomitant]
     Active Substance: CLOZAPINE
     Indication: SCHIZOPHRENIA
     Route: 048
     Dates: start: 20140928
  2. ANDROCUR DEPOT [Suspect]
     Active Substance: CYPROTERONE ACETATE
     Indication: SEXUALLY INAPPROPRIATE BEHAVIOUR
     Route: 030
     Dates: start: 19950620, end: 20171005
  3. PROCRIN [Suspect]
     Active Substance: LEUPROLIDE ACETATE
     Indication: SEXUALLY INAPPROPRIATE BEHAVIOUR
     Route: 030
     Dates: start: 19950622, end: 20171005

REACTIONS (3)
  - Meningioma [Not Recovered/Not Resolved]
  - Headache [Unknown]
  - Meningioma benign [Not Recovered/Not Resolved]

NARRATIVE: CASE EVENT DATE: 201703
